FAERS Safety Report 18406091 (Version 1)
Quarter: 2020Q4

REPORT INFORMATION
  Report Type: Report from Study
  Country: US (occurrence: US)
  Receive Date: 20201020
  Receipt Date: 20201020
  Transmission Date: 20210114
  Serious: Yes (Hospitalization, Other)
  Sender: FDA-Public Use
  Company Number: US-JNJFOC-A-NJ2019-192964

PATIENT
  Age: 60 Year
  Sex: Female
  Weight: 85.35 kg

DRUGS (3)
  1. OPSUMIT [Suspect]
     Active Substance: MACITENTAN
     Indication: PULMONARY ARTERIAL HYPERTENSION
     Dosage: 10 MG, QD
     Route: 048
     Dates: start: 201906
  2. ELIQUIS [Concomitant]
     Active Substance: APIXABAN
  3. ADEMPAS [Concomitant]
     Active Substance: RIOCIGUAT
     Dosage: 2.5 MG, TID

REACTIONS (13)
  - Abdominal discomfort [Unknown]
  - Pulmonary hypertension [Recovered/Resolved]
  - Candida infection [Unknown]
  - Influenza [Unknown]
  - Pneumonia [Unknown]
  - Food poisoning [Unknown]
  - Fluid retention [Unknown]
  - Nasopharyngitis [Unknown]
  - Dyspnoea [Unknown]
  - Oxygen saturation decreased [Unknown]
  - Hypotension [Unknown]
  - Pyrexia [Unknown]
  - Bacterial infection [Unknown]
